FAERS Safety Report 5390752-9 (Version None)
Quarter: 2007Q3

REPORT INFORMATION
  Report Type: 
  Country: None (occurrence: None)
  Receive Date: 20070718
  Receipt Date: 20070705
  Transmission Date: 20080115
  Serious: Yes (Hospitalization)
  Sender: FDA-Public Use
  Company Number: US-ELI_LILLY_AND_COMPANY-US200707001223

PATIENT
  Age: 62 Year
  Sex: Female

DRUGS (1)
  1. FORTEO [Suspect]
     Indication: OSTEOPOROSIS
     Dates: start: 20050901

REACTIONS (6)
  - ABDOMINAL INFECTION [None]
  - ABSCESS INTESTINAL [None]
  - HERNIA [None]
  - INTESTINAL PERFORATION [None]
  - INTESTINAL POLYP [None]
  - PROCEDURAL PAIN [None]
